FAERS Safety Report 9719010 (Version 3)
Quarter: 2014Q1

REPORT INFORMATION
  Report Type: Spontaneous
  Country: DE (occurrence: None)
  Receive Date: 20131126
  Receipt Date: 20140210
  Transmission Date: 20141002
  Serious: Yes (Other)
  Sender: FDA-Public Use
  Company Number: 1311-1498

PATIENT
  Age: 81 Year
  Sex: Male

DRUGS (1)
  1. EYLEA (AFLIBERCEPT) (SOLUTION FOR INJECTION) AFLIBERCEPT) [Suspect]
     Indication: AGE-RELATED MACULAR DEGENERATION
     Dates: start: 20121218

REACTIONS (6)
  - Macular oedema [None]
  - Inappropriate schedule of drug administration [None]
  - Vision blurred [None]
  - Retinal haemorrhage [None]
  - Disease recurrence [None]
  - Age-related macular degeneration [None]
